FAERS Safety Report 6738930-8 (Version None)
Quarter: 2010Q2

REPORT INFORMATION
  Report Type: 
  Country: None (occurrence: None)
  Receive Date: 20100524
  Receipt Date: 20100519
  Transmission Date: 20101027
  Serious: Yes (Hospitalization)
  Sender: FDA-Public Use
  Company Number: US-MERCK-1005USA02705

PATIENT
  Age: 84 Year
  Sex: Male

DRUGS (1)
  1. ZETIA [Suspect]
     Indication: BLOOD CHOLESTEROL INCREASED
     Route: 048
     Dates: start: 20090501, end: 20100518

REACTIONS (4)
  - DYSPHAGIA [None]
  - DYSPNOEA [None]
  - MUSCLE TIGHTNESS [None]
  - MYALGIA [None]
